FAERS Safety Report 12590900 (Version 2)
Quarter: 2016Q3

REPORT INFORMATION
  Report Type: Spontaneous
  Country: US (occurrence: US)
  Receive Date: 20160726
  Receipt Date: 20160726
  Transmission Date: 20161109
  Serious: No
  Sender: FDA-Public Use
  Company Number: US-UNITED THERAPEUTICS-UNT-2015-015005

PATIENT
  Age: 58 Year
  Sex: Female
  Weight: 124.72 kg

DRUGS (2)
  1. REMODULIN [Suspect]
     Active Substance: TREPROSTINIL
     Indication: PULMONARY ARTERIAL HYPERTENSION
     Dosage: 0.028 ?G/KG, CONTINUING
     Route: 041
     Dates: start: 20150806
  2. SILDENAFIL. [Concomitant]
     Active Substance: SILDENAFIL
     Indication: PRODUCT USED FOR UNKNOWN INDICATION

REACTIONS (13)
  - Nausea [Unknown]
  - Abdominal pain [Recovering/Resolving]
  - Injection site erythema [Recovering/Resolving]
  - Injection site vesicles [Recovering/Resolving]
  - Dyspnoea [Unknown]
  - Diarrhoea [Recovering/Resolving]
  - Headache [Recovering/Resolving]
  - Injection site scab [Recovering/Resolving]
  - Vomiting [Unknown]
  - Fatigue [Recovering/Resolving]
  - Drug administration error [Unknown]
  - Drug dose omission [Unknown]
  - Dermatitis contact [Unknown]

NARRATIVE: CASE EVENT DATE: 201511
